FAERS Safety Report 5634550-7 (Version None)
Quarter: 2008Q1

REPORT INFORMATION
  Report Type: 
  Country: None (occurrence: None)
  Receive Date: 20080222
  Receipt Date: 20080218
  Transmission Date: 20080703
  Serious: Yes (Life-Threatening, Hospitalization)
  Sender: FDA-Public Use
  Company Number: PHNU2008DE01005

PATIENT
  Age: 63 Year
  Sex: Male

DRUGS (45)
  1. HEPARIN [Suspect]
     Indication: THROMBOSIS PROPHYLAXIS
     Dosage: 25000 IU, QD
     Dates: start: 20050627, end: 20050709
  2. BRICANYL [Suspect]
     Indication: DYSPNOEA
     Dosage: 0.5 DF, BID
     Dates: start: 20050627, end: 20050709
  3. ACETYLCYSTEINE [Suspect]
     Indication: PRODUCTIVE COUGH
     Dosage: 300 MG, BID
     Route: 048
     Dates: start: 20050629, end: 20050712
  4. JUNIK [Suspect]
     Indication: CHRONIC OBSTRUCTIVE PULMONARY DISEASE
     Dosage: 1 DF, BID
     Dates: start: 20050627, end: 20050715
  5. PANTOPRAZOLE SODIUM [Suspect]
     Dosage: 40 MG, QD
     Route: 048
     Dates: start: 20050629, end: 20050630
  6. PANTOPRAZOLE SODIUM [Suspect]
     Dosage: 40 MG, QD
     Route: 048
     Dates: start: 20050704, end: 20050718
  7. THEOPHYLLINE [Suspect]
     Indication: CHRONIC OBSTRUCTIVE PULMONARY DISEASE
     Dosage: 600 MG, QD
     Dates: start: 20050630, end: 20050630
  8. THEOPHYLLINE [Suspect]
     Dosage: 200 MG, QD
     Dates: start: 20050718, end: 20050718
  9. THEOPHYLLINE [Suspect]
     Dosage: 200 MG, QD
     Dates: start: 20050721, end: 20050721
  10. BEROTEC [Suspect]
     Indication: CHRONIC OBSTRUCTIVE PULMONARY DISEASE
     Dosage: 2 TO 3 TIMES/WEEK
     Dates: start: 20050601
  11. SPIRIVA [Suspect]
     Indication: CHRONIC OBSTRUCTIVE PULMONARY DISEASE
     Dosage: 1 DF, QD
     Dates: start: 20050601
  12. PREDNISOLONE [Suspect]
     Indication: CHRONIC OBSTRUCTIVE PULMONARY DISEASE
     Dosage: UNKNOWN
     Route: 048
     Dates: start: 20050628, end: 20050705
  13. PREDNISOLONE [Suspect]
     Dosage: UNKNOWN
     Route: 048
     Dates: start: 20050707, end: 20050715
  14. PREDNISOLONE [Suspect]
     Dosage: UNKNOWN
     Route: 048
     Dates: start: 20050719
  15. AMBROXOL [Suspect]
     Indication: PRODUCTIVE COUGH
     Dosage: 14 DF, BID
     Route: 048
     Dates: start: 20050701, end: 20050718
  16. DELIX PLUS [Suspect]
     Indication: CORONARY ARTERY DISEASE
     Dosage: 1 DF, QD
     Route: 048
     Dates: start: 20050703
  17. NORVASC [Suspect]
     Indication: CORONARY ARTERY DISEASE
     Dosage: 5 MG, QD
     Route: 048
     Dates: start: 20050704, end: 20050709
  18. THEOPHYLLINE [Suspect]
     Dosage: 600 MG, QD
     Route: 048
     Dates: start: 20050704, end: 20050709
  19. KALINOR [Suspect]
     Indication: HYPOKALAEMIA
     Dosage: 1 DF, QD
     Route: 048
     Dates: start: 20050704, end: 20050713
  20. FUROSEMIDE [Suspect]
     Indication: HYPERTENSION
     Dosage: 40 MG, QD
     Route: 048
     Dates: start: 20050707
  21. OXAZEPAM [Suspect]
     Indication: SEDATION
     Dosage: UNKNOWN
     Route: 048
     Dates: start: 20050708, end: 20050708
  22. DIGIMERCK [Suspect]
     Indication: CORONARY ARTERY DISEASE
     Dosage: 0.1 MG, QD
     Route: 048
     Dates: start: 20050708
  23. ISOPTIN [Suspect]
     Indication: TACHYARRHYTHMIA
     Dosage: 80 TO 160 MG/DAY
     Route: 048
     Dates: start: 20050709
  24. MARCUMAR [Suspect]
     Indication: ATRIAL FIBRILLATION
     Dosage: UNKNOWN
     Route: 048
     Dates: start: 20050710
  25. CALCIUM [Suspect]
     Indication: OSTEOPOROSIS
     Dosage: 500 MG, BID
     Route: 048
     Dates: start: 20050715, end: 20050718
  26. DECORTIN-H [Suspect]
     Indication: CHRONIC OBSTRUCTIVE PULMONARY DISEASE
     Dosage: 15 MG, QD
     Route: 048
     Dates: start: 20050716, end: 20050718
  27. DECORTIN-H [Suspect]
     Dosage: 100 MG, QD
     Route: 048
     Dates: start: 20050721, end: 20050721
  28. VIGANTOLETTEN [Suspect]
     Indication: OSTEOPOROSIS
     Dosage: 1000 IU, QD
     Route: 048
     Dates: start: 20050717, end: 20050717
  29. ATMADISC [Suspect]
     Indication: CHRONIC OBSTRUCTIVE PULMONARY DISEASE
     Dosage: 1 DF, BID
     Dates: start: 20050718
  30. VERAPAMIL [Suspect]
     Indication: TACHYARRHYTHMIA
     Dosage: 80 TO 240 MG/DAY
     Route: 048
     Dates: start: 20050718
  31. OMEPRAZOLE [Suspect]
     Indication: PROPHYLAXIS AGAINST GASTROINTESTINAL ULCER
     Dosage: 20 MG, QD
     Route: 048
     Dates: start: 20050719
  32. OSTEOPLUS [Suspect]
     Indication: OSTEOPOROSIS
     Dosage: 1 DF, BID
     Route: 048
     Dates: start: 20050719
  33. RAMIPRIL [Concomitant]
     Indication: CORONARY ARTERY DISEASE
     Dosage: 1 DF, QD
     Route: 048
     Dates: start: 20050630, end: 20050702
  34. AVELOX [Concomitant]
     Indication: INFECTIVE EXACERBATION OF CHRONIC OBSTRUCTIVE AIRWAYS DISEASE
     Dosage: 400 MG, QD
     Route: 048
     Dates: start: 20050627, end: 20050703
  35. PARACEFAN [Concomitant]
     Indication: ALCOHOL WITHDRAWAL SYNDROME
     Dosage: 1.5 G, QD
     Route: 042
     Dates: start: 20050628, end: 20050630
  36. PARACEFAN [Concomitant]
     Dosage: 1.5 G, QD
     Route: 042
     Dates: start: 20050703, end: 20050704
  37. DISTRANEURIN [Concomitant]
     Indication: ALCOHOL WITHDRAWAL SYNDROME
     Dosage: 2 DF, TID
     Route: 048
     Dates: start: 20050630, end: 20050703
  38. HALOPERIDOL [Concomitant]
     Indication: SEDATION
     Dosage: 10 DRP, QD
     Route: 048
     Dates: start: 20050629, end: 20050630
  39. HALOPERIDOL [Concomitant]
     Dosage: 10 DRP, QD
     Route: 048
     Dates: start: 20050730, end: 20050730
  40. RINGER'S [Concomitant]
     Indication: HYPOVOLAEMIA
     Dosage: 1000 ML, QD
     Route: 042
     Dates: start: 20050627, end: 20050703
  41. TRANXILIUM [Concomitant]
     Indication: SEDATION
     Dosage: 25 MG/DAY
     Route: 048
     Dates: start: 20050627, end: 20050702
  42. TRANXILIUM [Concomitant]
     Dosage: 25 MG/DAY
     Route: 048
     Dates: start: 20050705, end: 20050705
  43. NITROGLYCERIN [Concomitant]
     Indication: HYPERTENSION
     Dosage: 50 MG, QD
     Route: 042
     Dates: start: 20050702, end: 20050702
  44. ALT-INSULIN [Concomitant]
     Indication: BLOOD GLUCOSE ABNORMAL
     Dosage: UNKNOWN
     Route: 058
     Dates: start: 20050703, end: 20050703
  45. FORADIL [Suspect]
     Indication: CHRONIC OBSTRUCTIVE PULMONARY DISEASE
     Dosage: 1 DF, BID
     Dates: start: 20050629, end: 20050718

REACTIONS (9)
  - BLISTER [None]
  - LIP EROSION [None]
  - NIKOLSKY'S SIGN [None]
  - ORAL MUCOSA EROSION [None]
  - PRURITUS [None]
  - PYREXIA [None]
  - RASH [None]
  - STEVENS-JOHNSON SYNDROME [None]
  - TOXIC EPIDERMAL NECROLYSIS [None]
